FAERS Safety Report 5487272-X (Version None)
Quarter: 2007Q4

REPORT INFORMATION
  Report Type: 
  Country: None (occurrence: None)
  Receive Date: 20071015
  Receipt Date: 20070928
  Transmission Date: 20080405
  Serious: Yes (Death, Hospitalization)
  Sender: FDA-Public Use
  Company Number: 2007001814

PATIENT
  Age: 86 Year
  Sex: Male
  Weight: 82.7 kg

DRUGS (1)
  1. ERLOTINIB (ERLOTINIB HCI) (TABLET) (ERLOTINIB HCI) [Suspect]
     Indication: NON-SMALL CELL LUNG CANCER
     Dosage: 150 MG (150 MG, QD), ORAL
     Route: 048
     Dates: start: 20070905, end: 20070916

REACTIONS (5)
  - CACHEXIA [None]
  - DEHYDRATION [None]
  - FAILURE TO THRIVE [None]
  - HYPERGLYCAEMIA [None]
  - UNRESPONSIVE TO STIMULI [None]
